FAERS Safety Report 15476940 (Version 1)
Quarter: 2018Q4

REPORT INFORMATION
  Report Type: Spontaneous
  Country: US (occurrence: US)
  Receive Date: 20181002
  Receipt Date: 20181002
  Transmission Date: 20190205
  Serious: No
  Sender: FDA-Public Use
  Company Number: None

PATIENT
  Age: 29 Year
  Sex: Female
  Weight: 78.75 kg

DRUGS (4)
  1. METHYLPHENIDATE ER [Suspect]
     Active Substance: METHYLPHENIDATE
     Indication: ATTENTION DEFICIT/HYPERACTIVITY DISORDER
     Dosage: ?          QUANTITY:2 CAPSULE(S);?
     Route: 048
     Dates: start: 20180919
  2. CONCERTA [Concomitant]
     Active Substance: METHYLPHENIDATE HYDROCHLORIDE
  3. LO-ESTRIN [Concomitant]
  4. ULTRAVATE [Concomitant]
     Active Substance: HALOBETASOL PROPIONATE

REACTIONS (2)
  - Therapy non-responder [None]
  - Product substitution issue [None]

NARRATIVE: CASE EVENT DATE: 20180923
